FAERS Safety Report 13950030 (Version 1)
Quarter: 2017Q3

REPORT INFORMATION
  Report Type: Spontaneous
  Country: FR (occurrence: FR)
  Receive Date: 20170908
  Receipt Date: 20170908
  Transmission Date: 20171128
  Serious: Yes (Other)
  Sender: FDA-Public Use
  Company Number: FR-MERCK KGAA-2025781

PATIENT
  Age: 75 Year
  Sex: Female

DRUGS (2)
  1. NOVOTHYROX [Suspect]
     Active Substance: LEVOTHYROXINE SODIUM
     Indication: HYPOTHYROIDISM
     Route: 065
     Dates: start: 2017, end: 201708
  2. NOVOTHYROX [Suspect]
     Active Substance: LEVOTHYROXINE SODIUM
     Route: 065
     Dates: start: 20170824

REACTIONS (13)
  - Stress [Unknown]
  - Headache [Unknown]
  - Angina pectoris [Unknown]
  - Anxiety [Unknown]
  - Fatigue [Unknown]
  - Hyperthyroidism [Unknown]
  - Dry skin [Unknown]
  - Initial insomnia [Unknown]
  - Heart rate increased [Recovered/Resolved]
  - Blood thyroid stimulating hormone decreased [Unknown]
  - Arthralgia [Unknown]
  - Alopecia [Unknown]
  - Blood pressure increased [Recovered/Resolved]

NARRATIVE: CASE EVENT DATE: 20170821
